FAERS Safety Report 7753312-8 (Version None)
Quarter: 2011Q3

REPORT INFORMATION
  Report Type: 
  Country: None (occurrence: None)
  Receive Date: 20110915
  Receipt Date: 20110906
  Transmission Date: 20111222
  Serious: Yes (Hospitalization, Other)
  Sender: FDA-Public Use
  Company Number: US-ASTRAZENECA-2011SE22865

PATIENT
  Age: 66 Year
  Sex: Female

DRUGS (4)
  1. FEMARA [Concomitant]
  2. ALBUTEROL [Concomitant]
  3. SYMBICORT [Suspect]
     Indication: ASTHMA
     Dosage: 160/4.5 TWO PUFFS TWICE A DAY
     Route: 055
  4. VENTOLIN HFA [Concomitant]

REACTIONS (3)
  - INFECTION [None]
  - DRUG DOSE OMISSION [None]
  - BREAST CANCER [None]
